FAERS Safety Report 11870639 (Version 1)
Quarter: 2015Q4

REPORT INFORMATION
  Report Type: Spontaneous
  Country: US (occurrence: US)
  Receive Date: 20151228
  Receipt Date: 20151228
  Transmission Date: 20160305
  Serious: Yes (Death, Other)
  Sender: FDA-Public Use
  Company Number: US-SANOFI-AVENTIS-2012SA018152

PATIENT
  Age: 70 Year
  Sex: Female

DRUGS (33)
  1. PLAVIX [Suspect]
     Active Substance: CLOPIDOGREL BISULFATE
     Indication: ARTERIOSCLEROSIS
     Route: 065
     Dates: start: 20000101, end: 20111231
  2. HYDROCODONE [Concomitant]
     Active Substance: HYDROCODONE
     Indication: PAIN
     Dosage: DOSE: UPTO 10
  3. VICODIN [Concomitant]
     Active Substance: ACETAMINOPHEN\HYDROCODONE BITARTRATE
  4. ZESTRIL [Concomitant]
     Active Substance: LISINOPRIL
  5. FOSAMAX [Concomitant]
     Active Substance: ALENDRONATE SODIUM
  6. GABAPENTIN. [Concomitant]
     Active Substance: GABAPENTIN
     Dosage: 30MG
  7. LIPITOR [Concomitant]
     Active Substance: ATORVASTATIN CALCIUM
  8. PRILOSEC [Concomitant]
     Active Substance: OMEPRAZOLE MAGNESIUM
  9. VITAMIN C [Concomitant]
     Active Substance: ASCORBIC ACID
     Dosage: FREQUENCY: 1AM/1 BEDTIME
  10. ALBUTEROL. [Concomitant]
     Active Substance: ALBUTEROL
  11. ASPIRIN. [Suspect]
     Active Substance: ASPIRIN
     Indication: PRODUCT USED FOR UNKNOWN INDICATION
     Route: 065
     Dates: start: 200001
  12. ZANTAC [Concomitant]
     Active Substance: RANITIDINE HYDROCHLORIDE
     Dosage: 150MG
  13. ALTACE [Concomitant]
     Active Substance: RAMIPRIL
  14. ISOSORBIDE. [Concomitant]
     Active Substance: ISOSORBIDE
  15. PROZAC [Concomitant]
     Active Substance: FLUOXETINE HYDROCHLORIDE
  16. CENTRUM SILVER [Concomitant]
     Active Substance: MINERALS\VITAMINS
     Dosage: FREQUENCY: 1 AM/ 1 BEDTIME
  17. MAGNESIUM [Concomitant]
     Active Substance: MAGNESIUM
  18. IRON [Concomitant]
     Active Substance: IRON
  19. PREVACID [Concomitant]
     Active Substance: LANSOPRAZOLE
  20. SPIRIVA [Concomitant]
     Active Substance: TIOTROPIUM BROMIDE MONOHYDRATE
     Dosage: 18MG
  21. LIPITOR [Concomitant]
     Active Substance: ATORVASTATIN CALCIUM
     Dosage: 40MG
  22. BENAZEPRIL [Concomitant]
     Active Substance: BENAZEPRIL HYDROCHLORIDE
     Dosage: 10MG
  23. ASA [Concomitant]
     Active Substance: ASPIRIN
     Dosage: 325MG
  24. NEXIUM [Concomitant]
     Active Substance: ESOMEPRAZOLE MAGNESIUM
  25. AMBIEN [Concomitant]
     Active Substance: ZOLPIDEM TARTRATE
  26. ADVIL [Concomitant]
     Active Substance: IBUPROFEN
  27. REMERON [Concomitant]
     Active Substance: MIRTAZAPINE
  28. TYLENOL [Concomitant]
     Active Substance: ACETAMINOPHEN
  29. ZOLOFT [Concomitant]
     Active Substance: SERTRALINE HYDROCHLORIDE
     Route: 048
  30. CELEXA [Concomitant]
     Active Substance: CITALOPRAM HYDROBROMIDE
  31. CELEXA [Concomitant]
     Active Substance: CITALOPRAM HYDROBROMIDE
  32. WELLBUTRIN [Concomitant]
     Active Substance: BUPROPION HYDROCHLORIDE
     Dosage: FREQUENCY: QAM
  33. LOTREL [Concomitant]
     Active Substance: AMLODIPINE BESYLATE\BENAZEPRIL HYDROCHLORIDE

REACTIONS (3)
  - Ulcer haemorrhage [Unknown]
  - Haemoglobin decreased [Unknown]
  - Gastrointestinal haemorrhage [Unknown]

NARRATIVE: CASE EVENT DATE: 20090201
